FAERS Safety Report 20598179 (Version 1)
Quarter: 2022Q1

REPORT INFORMATION
  Report Type: Report from Study
  Country: JP (occurrence: JP)
  Receive Date: 20220315
  Receipt Date: 20220315
  Transmission Date: 20220423
  Serious: Yes (Hospitalization, Other)
  Sender: FDA-Public Use
  Company Number: JP-NOVARTISPH-NVSJ2021JP020853

PATIENT
  Age: 10 Year
  Sex: Female
  Weight: 28.2 kg

DRUGS (8)
  1. ILARIS [Suspect]
     Active Substance: CANAKINUMAB
     Indication: Familial mediterranean fever
     Dosage: 75 MG
     Route: 058
     Dates: start: 20210430
  2. ILARIS [Suspect]
     Active Substance: CANAKINUMAB
     Dosage: 75 MG
     Route: 058
     Dates: start: 20210528, end: 20210528
  3. ILARIS [Suspect]
     Active Substance: CANAKINUMAB
     Dosage: 100 MG
     Route: 058
     Dates: start: 20210625, end: 20210625
  4. ILARIS [Suspect]
     Active Substance: CANAKINUMAB
     Dosage: 100 MG
     Route: 058
     Dates: start: 20210721, end: 20210721
  5. ILARIS [Suspect]
     Active Substance: CANAKINUMAB
     Dosage: 100 MG
     Route: 058
     Dates: start: 20210818, end: 20210818
  6. ILARIS [Suspect]
     Active Substance: CANAKINUMAB
     Dosage: 100 MG
     Route: 058
     Dates: start: 20210915, end: 20210915
  7. ILARIS [Suspect]
     Active Substance: CANAKINUMAB
     Dosage: 100 MG
     Route: 058
     Dates: start: 20211013
  8. PREDNISOLONE [Concomitant]
     Active Substance: PREDNISOLONE
     Indication: Familial mediterranean fever
     Dosage: UNK
     Route: 048

REACTIONS (4)
  - Abdominal pain [Recovering/Resolving]
  - Adrenal insufficiency [Unknown]
  - Familial mediterranean fever [Unknown]
  - Condition aggravated [Unknown]

NARRATIVE: CASE EVENT DATE: 20210610
